FAERS Safety Report 23395970 (Version 1)
Quarter: 2024Q1

REPORT INFORMATION
  Report Type: Spontaneous
  Country: DE (occurrence: DE)
  Receive Date: 20240112
  Receipt Date: 20240112
  Transmission Date: 20240410
  Serious: Yes (Death, Hospitalization, Other)
  Sender: FDA-Public Use
  Company Number: DE-SUN PHARMACEUTICAL INDUSTRIES LTD-2023R1-426671

PATIENT
  Age: 11 Year
  Sex: Female

DRUGS (7)
  1. ACYCLOVIR [Suspect]
     Active Substance: ACYCLOVIR
     Indication: Infection
     Dosage: UNK
     Route: 065
  2. DOXYCYCLINE [Suspect]
     Active Substance: DOXYCYCLINE
     Indication: Infection
     Dosage: UNK
     Route: 065
  3. DEXAMETHASONE [Suspect]
     Active Substance: DEXAMETHASONE
     Indication: Infection
     Dosage: 0.4 MILLIGRAM/KILOGRAM, QD
     Route: 065
  4. FAVIPIRAVIR [Suspect]
     Active Substance: FAVIPIRAVIR
     Indication: Borna virus infection
     Dosage: 800 MILLIGRAM, BID
     Route: 065
  5. METHYLPREDNISOLONE [Suspect]
     Active Substance: METHYLPREDNISOLONE
     Indication: Infection
     Dosage: 20 MILLIGRAM/KILOGRAM, QD
     Route: 065
  6. RIBAVIRIN [Suspect]
     Active Substance: RIBAVIRIN
     Indication: Borna virus infection
     Dosage: 30 MILLIGRAM/KILOGRAM, QD
     Route: 065
  7. RIBAVIRIN [Suspect]
     Active Substance: RIBAVIRIN
     Dosage: 64 MILLIGRAM/KILOGRAM, QD
     Route: 065

REACTIONS (1)
  - Condition aggravated [Fatal]
